FAERS Safety Report 24136720 (Version 1)
Quarter: 2024Q3

REPORT INFORMATION
  Report Type: Spontaneous
  Country: MX (occurrence: MX)
  Receive Date: 20240725
  Receipt Date: 20240725
  Transmission Date: 20241017
  Serious: Yes (Other)
  Sender: TRIS PHARM
  Company Number: MX-TRIS PHARMA, INC.-24MX011571

PATIENT

DRUGS (8)
  1. METHYLPHENIDATE HYDROCHLORIDE [Suspect]
     Active Substance: METHYLPHENIDATE HYDROCHLORIDE
     Indication: Attention deficit hyperactivity disorder
     Dosage: 10 MILLIGRAM, BID (10MG AT 8 AM WITH BREAKFAST AND 2ND DOSE OF 10MG 4 HOURS AFTER THE FIRST DOSE)
     Route: 048
  2. METHYLPHENIDATE HYDROCHLORIDE [Suspect]
     Active Substance: METHYLPHENIDATE HYDROCHLORIDE
     Dosage: 10 MILLIGRAM, QD (WITH BREAKFAST)
     Route: 048
  3. FUROSEMIDE [Concomitant]
     Active Substance: FUROSEMIDE
     Indication: Atrial septal defect
     Dosage: 0.5 MILLIGRAM PER KILOGRAM, BID
  4. FUROSEMIDE [Concomitant]
     Active Substance: FUROSEMIDE
     Indication: Anomalous pulmonary venous connection
  5. FUROSEMIDE [Concomitant]
     Active Substance: FUROSEMIDE
     Indication: Cardiomegaly
  6. SPIRONOLACTONE [Concomitant]
     Active Substance: SPIRONOLACTONE
     Indication: Atrial septal defect
     Dosage: 0.5 MILLIGRAM PER KILOGRAM, BID
  7. SPIRONOLACTONE [Concomitant]
     Active Substance: SPIRONOLACTONE
     Indication: Anomalous pulmonary venous connection
  8. SPIRONOLACTONE [Concomitant]
     Active Substance: SPIRONOLACTONE
     Indication: Cardiomegaly

REACTIONS (2)
  - Pulmonary hypertension [Recovering/Resolving]
  - Cyanosis [Recovered/Resolved]
